FAERS Safety Report 25271290 (Version 1)
Quarter: 2025Q2

REPORT INFORMATION
  Report Type: Spontaneous
  Country: US (occurrence: US)
  Receive Date: 20250506
  Receipt Date: 20250506
  Transmission Date: 20250716
  Serious: Yes (Other)
  Sender: COOPERSURGICAL
  Company Number: US-COOPERSURGICAL, INC.-2025CPS003378

PATIENT
  Age: 33 Year
  Sex: Female
  Weight: 63.492 kg

DRUGS (2)
  1. PARAGARD T 380A [Suspect]
     Active Substance: COPPER
     Route: 015
     Dates: start: 20170808
  2. IRON [Concomitant]
     Active Substance: IRON
     Dates: start: 200601

REACTIONS (9)
  - Reproductive complication associated with device [Not Recovered/Not Resolved]
  - Device breakage [Recovered/Resolved]
  - Foreign body in urogenital tract [Recovered/Resolved]
  - Complication of device removal [Recovered/Resolved]
  - Embedded device [Not Recovered/Not Resolved]
  - Procedural pain [Recovered/Resolved]
  - Procedural nausea [Recovered/Resolved]
  - Emotional disorder [Unknown]
  - Menstruation irregular [Unknown]

NARRATIVE: CASE EVENT DATE: 20201217
